FAERS Safety Report 14386777 (Version 2)
Quarter: 2018Q3

REPORT INFORMATION
  Report Type: Spontaneous
  Country: US (occurrence: US)
  Receive Date: 20180115
  Receipt Date: 20180925
  Transmission Date: 20181010
  Serious: Yes (Other)
  Sender: FDA-Public Use
  Company Number: US-SA-2017SA116299

PATIENT
  Age: 51 Year
  Sex: Female
  Weight: 110.2 kg

DRUGS (16)
  1. PROMETHAZINE [Concomitant]
     Active Substance: PROMETHAZINE\PROMETHAZINE HYDROCHLORIDE
     Dosage: UNK UNK,UNK
     Route: 065
     Dates: start: 20050101, end: 201606
  2. TAXOTERE [Suspect]
     Active Substance: DOCETAXEL
     Dosage: 75 MG/M2, Q3W
     Route: 042
     Dates: start: 20150730, end: 20150730
  3. XANAX [Concomitant]
     Active Substance: ALPRAZOLAM
     Dosage: 2 MG BID
     Route: 048
     Dates: start: 2005
  4. PARAPLATIN [Concomitant]
     Active Substance: CARBOPLATIN
  5. NEOSAR [Concomitant]
     Active Substance: CYCLOPHOSPHAMIDE
     Dosage: UNK
  6. ROXICODONE [Concomitant]
     Active Substance: OXYCODONE HYDROCHLORIDE
     Dosage: 30 MG, QID
     Dates: start: 20000701, end: 2010
  7. TAXOTERE [Suspect]
     Active Substance: DOCETAXEL
     Indication: BREAST CANCER FEMALE
     Dosage: 75 MG/M2, Q3W
     Route: 042
     Dates: start: 20150331, end: 20150331
  8. SOMA [Concomitant]
     Active Substance: CARISOPRODOL
     Dosage: 350 MG BID
     Route: 048
     Dates: start: 2005, end: 20170301
  9. CLONIDINE. [Concomitant]
     Active Substance: CLONIDINE
     Dosage: 0.2 MG TID
     Route: 048
     Dates: start: 2005, end: 2010
  10. OXYCONTIN [Concomitant]
     Active Substance: OXYCODONE HYDROCHLORIDE
     Dosage: 80 MG TID
  11. PERJETA [Concomitant]
     Active Substance: PERTUZUMAB
  12. HERCEPTIN [Concomitant]
     Active Substance: TRASTUZUMAB
  13. PRILOSEC [OMEPRAZOLE MAGNESIUM] [Concomitant]
     Dosage: 10 MG, QD
     Route: 048
  14. NEURONTIN [Concomitant]
     Active Substance: GABAPENTIN
     Dosage: 800 MG TID
     Route: 048
     Dates: start: 20050101
  15. AZACORT [Concomitant]
     Dosage: UNK
  16. ULTRACET [Concomitant]
     Active Substance: ACETAMINOPHEN\TRAMADOL HYDROCHLORIDE
     Dosage: 1 DF, QID
     Route: 048

REACTIONS (4)
  - Anxiety [Unknown]
  - Alopecia [Not Recovered/Not Resolved]
  - Emotional distress [Unknown]
  - Pain [Unknown]

NARRATIVE: CASE EVENT DATE: 20160401
